FAERS Safety Report 16051502 (Version 1)
Quarter: 2019Q1

REPORT INFORMATION
  Report Type: Report from Study
  Country: US (occurrence: US)
  Receive Date: 20190308
  Receipt Date: 20190308
  Transmission Date: 20190418
  Serious: Yes (Other)
  Sender: FDA-Public Use
  Company Number: US-ROCHE-2275789

PATIENT

DRUGS (7)
  1. METHYLPREDNISOLONE. [Suspect]
     Active Substance: METHYLPREDNISOLONE
     Indication: LUPUS NEPHRITIS
     Dosage: AT WEEK 0 AND WEEK 2
     Route: 042
  2. RITUXIMAB. [Suspect]
     Active Substance: RITUXIMAB
     Indication: LUPUS NEPHRITIS
     Dosage: AT WEEK 0 AND WEEK 2
     Route: 042
  3. BELIMUMAB [Suspect]
     Active Substance: BELIMUMAB
     Indication: LUPUS NEPHRITIS
     Dosage: AT WEEKS 4, 6, 8, AND THEN EVERY 4 WEEKS THROUGH WEEK 48
     Route: 042
  4. PREDNISONE. [Suspect]
     Active Substance: PREDNISONE
     Indication: LUPUS NEPHRITIS
     Dosage: TAPER TO 10 MG/DAY BY WEEK 12 AND CONTINUE UPTI WEEK 96
     Route: 065
  5. DIPHENHYDRAMINE. [Concomitant]
     Active Substance: DIPHENHYDRAMINE
     Route: 048
  6. CYCLOPHOSPHAMIDE. [Suspect]
     Active Substance: CYCLOPHOSPHAMIDE
     Indication: LUPUS NEPHRITIS
     Dosage: AT WEEK 0 AND WEEK 2
     Route: 042
  7. ACETAMINOPHEN. [Concomitant]
     Active Substance: ACETAMINOPHEN
     Route: 048

REACTIONS (6)
  - Abscess soft tissue [Unknown]
  - Deep vein thrombosis [Unknown]
  - Systemic lupus erythematosus [Unknown]
  - Lupus nephritis [Unknown]
  - Infection [Recovered/Resolved]
  - Pneumonia [Unknown]
